FAERS Safety Report 9701241 (Version 1)
Quarter: 2013Q4

REPORT INFORMATION
  Report Type: Spontaneous
  Country: US (occurrence: US)
  Receive Date: 20131121
  Receipt Date: 20131121
  Transmission Date: 20140711
  Serious: No
  Sender: FDA-Public Use
  Company Number: US-GILEAD-2008-0016208

PATIENT
  Sex: Female

DRUGS (11)
  1. LETAIRIS [Suspect]
     Indication: PULMONARY ARTERIAL HYPERTENSION
     Route: 048
  2. VITAMIN D [Concomitant]
  3. ALBUTEROL [Concomitant]
  4. XANAX [Concomitant]
  5. SPIRIVA [Concomitant]
  6. COUMADIN [Concomitant]
  7. POTASSIUM [Concomitant]
  8. CALCIUM [Concomitant]
  9. FUROSEMIDE [Concomitant]
  10. SYNTHROID [Concomitant]
  11. ASPIRIN [Concomitant]

REACTIONS (3)
  - Cough [Recovered/Resolved]
  - Pulmonary congestion [Recovered/Resolved]
  - Nasal congestion [Recovered/Resolved]
